FAERS Safety Report 8914560 (Version 1)
Quarter: 2012Q4

REPORT INFORMATION
  Report Type: Report from Study
  Country: TR (occurrence: TR)
  Receive Date: 20121119
  Receipt Date: 20121119
  Transmission Date: 20130627
  Serious: Yes (Life-Threatening)
  Sender: FDA-Public Use
  Company Number: TR-ROCHE-1155517

PATIENT
  Age: 63 Year

DRUGS (1)
  1. CAPECITABINE [Suspect]
     Indication: HEPATIC NEOPLASM MALIGNANT
     Route: 065
     Dates: start: 20120813, end: 20121001

REACTIONS (2)
  - Metastases to bone [Not Recovered/Not Resolved]
  - Metastases to uterus [Not Recovered/Not Resolved]
